FAERS Safety Report 6579137-7 (Version None)
Quarter: 2010Q1

REPORT INFORMATION
  Report Type: 
  Country: None (occurrence: None)
  Receive Date: 20100212
  Receipt Date: 20100202
  Transmission Date: 20100710
  Serious: Yes (Hospitalization)
  Sender: FDA-Public Use
  Company Number: JP-JNJFOC-20090300145

PATIENT
  Sex: Female
  Weight: 53 kg

DRUGS (47)
  1. GOLIMUMAB [Suspect]
     Indication: RHEUMATOID ARTHRITIS
     Dosage: 7TH TIME IN WEEK 24
     Route: 058
  2. GOLIMUMAB [Suspect]
     Dosage: 7TH TIME IN WEEK 24
     Route: 058
  3. GOLIMUMAB [Suspect]
     Dosage: 7TH TIME IN WEEK 24
     Route: 058
  4. GOLIMUMAB [Suspect]
     Dosage: 7TH TIME IN WEEK 24
     Route: 058
  5. GOLIMUMAB [Suspect]
     Dosage: 7TH TIME IN WEEK 24
     Route: 058
  6. GOLIMUMAB [Suspect]
     Dosage: 7TH TIME IN WEEK 24
     Route: 058
  7. GOLIMUMAB [Suspect]
     Dosage: 7TH TIME IN WEEK 24
     Route: 058
  8. METHOTREXATE [Suspect]
     Indication: RHEUMATOID ARTHRITIS
     Route: 048
  9. PREDNISOLONE [Suspect]
     Indication: INFECTION
     Route: 048
  10. PREDNISOLONE [Suspect]
     Route: 048
  11. PREDNISOLONE [Suspect]
     Dosage: INFECTION TREATMENT
     Route: 048
  12. PREDNISOLONE [Suspect]
     Dosage: TREATMENT INFECTION
     Route: 048
  13. PREDNISOLONE [Suspect]
     Dosage: TREATMENT INFECTION
     Route: 048
  14. PREDNISOLONE [Suspect]
     Route: 048
  15. PREDNISOLONE [Suspect]
     Dosage: TREATMENT INFECTION
     Route: 048
  16. PREDNISOLONE [Suspect]
     Indication: RHEUMATOID ARTHRITIS
     Dosage: INFECTION TREATMENT
     Route: 048
  17. PREDNISOLONE [Suspect]
     Route: 048
  18. PREDNISOLONE [Suspect]
     Dosage: TREATMENT INFECTION
     Route: 048
  19. PREDNISOLONE [Suspect]
     Route: 048
  20. PREDNISOLONE [Suspect]
     Route: 048
  21. PREDNISOLONE [Suspect]
     Dosage: TREATMENT INFECTION
     Route: 048
  22. PREDNISOLONE [Suspect]
     Dosage: TREATMENT INFECTION
     Route: 048
  23. GASPORT [Concomitant]
     Indication: PROPHYLAXIS
     Route: 048
  24. INDOMETACIN [Concomitant]
     Indication: RHEUMATOID ARTHRITIS
     Route: 048
  25. INDOMETACIN [Concomitant]
     Route: 048
  26. MUCOSTA [Concomitant]
     Indication: PROPHYLAXIS
     Route: 048
  27. MUCOSTA [Concomitant]
     Route: 048
  28. MUCOSTA [Concomitant]
     Route: 048
  29. FOLIAMIN [Concomitant]
     Indication: PROPHYLAXIS
     Route: 048
  30. CARBOCISTEINE [Concomitant]
     Indication: EUSTACHIAN TUBE STENOSIS
     Route: 048
  31. CARBOCISTEINE [Concomitant]
     Route: 048
  32. MOHRUS TAPE [Concomitant]
     Indication: PYREXIA
     Route: 062
  33. MOHRUS TAPE [Concomitant]
     Indication: RHEUMATOID ARTHRITIS
     Route: 062
  34. ADEFURONIC [Concomitant]
     Indication: PYREXIA
     Route: 054
  35. ADEFURONIC [Concomitant]
     Route: 054
  36. ADEFURONIC [Concomitant]
     Dosage: DOSE = 28 PIECES/4 WEEKS
     Route: 054
  37. ADEFURONIC [Concomitant]
     Indication: RHEUMATOID ARTHRITIS
     Dosage: DOSE = 28 PIECES/4 WEEKS
     Route: 054
  38. ADEFURONIC [Concomitant]
     Route: 054
  39. ADEFURONIC [Concomitant]
     Route: 054
  40. SENNOSIDE [Concomitant]
     Indication: CONSTIPATION
     Route: 048
  41. ISODINE GARGLE [Concomitant]
     Indication: PROPHYLAXIS
     Route: 002
  42. PREDNISOLONE [Concomitant]
     Route: 048
  43. PREDNISOLONE [Concomitant]
     Route: 048
  44. PREDNISOLONE [Concomitant]
     Route: 048
  45. PREDNISOLONE [Concomitant]
     Route: 048
  46. LIPITOR [Concomitant]
     Indication: HYPERLIPIDAEMIA
     Route: 048
  47. DEPAS [Concomitant]
     Indication: INSOMNIA
     Route: 048

REACTIONS (1)
  - PNEUMOCYSTIS JIROVECI PNEUMONIA [None]
